FAERS Safety Report 23492164 (Version 1)
Quarter: 2024Q1

REPORT INFORMATION
  Report Type: Report from Study
  Country: US (occurrence: US)
  Receive Date: 20240207
  Receipt Date: 20240207
  Transmission Date: 20240409
  Serious: Yes (Hospitalization, Other)
  Sender: FDA-Public Use
  Company Number: US-JNJFOC-20240184490

PATIENT
  Sex: Male
  Weight: 9.5 kg

DRUGS (2)
  1. BOSENTAN [Suspect]
     Active Substance: BOSENTAN
     Indication: Pulmonary arterial hypertension
     Route: 061
  2. SILDENAFIL CITRATE [Concomitant]
     Active Substance: SILDENAFIL CITRATE

REACTIONS (5)
  - Hypoxia [Recovering/Resolving]
  - Diarrhoea [Unknown]
  - Cardiac operation [Recovering/Resolving]
  - Seasonal allergy [Unknown]
  - Off label use [Unknown]
